FAERS Safety Report 11893809 (Version 3)
Quarter: 2016Q1

REPORT INFORMATION
  Report Type: Spontaneous
  Country: US (occurrence: US)
  Receive Date: 20160106
  Receipt Date: 20160304
  Transmission Date: 20160526
  Serious: Yes (Other)
  Sender: FDA-Public Use
  Company Number: US-009507513-1601USA001468

PATIENT
  Age: 22 Year
  Sex: Female
  Weight: 83.9 kg

DRUGS (1)
  1. NEXPLANON [Suspect]
     Active Substance: ETONOGESTREL
     Indication: CONTRACEPTION
     Dosage: 68 MG/SINGLE INSERTION
     Route: 059
     Dates: start: 20151203, end: 20160105

REACTIONS (3)
  - Implant site infection [Recovered/Resolved]
  - Staphylococcal infection [Unknown]
  - Product quality issue [Unknown]

NARRATIVE: CASE EVENT DATE: 201512
